FAERS Safety Report 24729906 (Version 2)
Quarter: 2025Q3

REPORT INFORMATION
  Report Type: Report from Study
  Country: CA (occurrence: CA)
  Receive Date: 20241213
  Receipt Date: 20250809
  Transmission Date: 20251020
  Serious: Yes (Death, Other)
  Sender: ALEXION PHARMACEUTICALS
  Company Number: CA-AstraZeneca-CH-00767113A

PATIENT
  Age: 76 Year
  Sex: Male

DRUGS (20)
  1. SOLIRIS [Suspect]
     Active Substance: ECULIZUMAB
     Indication: Myasthenia gravis
     Dates: start: 20231117, end: 20231207
  2. SOLIRIS [Suspect]
     Active Substance: ECULIZUMAB
  3. SOLIRIS [Suspect]
     Active Substance: ECULIZUMAB
     Dosage: 1200 MILLIGRAM, Q2W
     Dates: start: 20231228, end: 20241031
  4. POTASSIUM CHLORIDE [Concomitant]
     Active Substance: POTASSIUM CHLORIDE
  5. VITAMIN D [Concomitant]
     Active Substance: VITAMIN D NOS
  6. ALENDRONATE [Concomitant]
     Active Substance: ALENDRONATE SODIUM
  7. CALCIUM [Concomitant]
     Active Substance: CALCIUM
  8. DEXILANT [Concomitant]
     Active Substance: DEXLANSOPRAZOLE
  9. FUROSEMIDE [Concomitant]
     Active Substance: FUROSEMIDE
  10. APIXABAN [Concomitant]
     Active Substance: APIXABAN
  11. SULFATRIM [Concomitant]
     Active Substance: SULFAMETHOXAZOLE\TRIMETHOPRIM
  12. PREDNISONE [Concomitant]
     Active Substance: PREDNISONE
  13. PYRIDOSTIGMINE [Concomitant]
     Active Substance: PYRIDOSTIGMINE
  14. SILODOSIN [Concomitant]
     Active Substance: SILODOSIN
  15. VALSARTAN [Concomitant]
     Active Substance: VALSARTAN
  16. MYCOPHENOLIC ACID [Concomitant]
     Active Substance: MYCOPHENOLIC ACID
  17. FERROUS SULFATE [Concomitant]
     Active Substance: FERROUS SULFATE
  18. HYDROMORPHONE [Concomitant]
     Active Substance: HYDROMORPHONE
  19. METOCLOPRAMIDE [Concomitant]
     Active Substance: METOCLOPRAMIDE
  20. CARBIDOPA\LEVODOPA [Concomitant]
     Active Substance: CARBIDOPA\LEVODOPA
     Route: 065

REACTIONS (1)
  - Death [Fatal]

NARRATIVE: CASE EVENT DATE: 20241116
